FAERS Safety Report 16776910 (Version 5)
Quarter: 2020Q1

REPORT INFORMATION
  Report Type: Report from Study
  Country: US (occurrence: US)
  Receive Date: 20190905
  Receipt Date: 20200110
  Transmission Date: 20200409
  Serious: Yes (Other)
  Sender: FDA-Public Use
  Company Number: US-PFIZER INC-2019361925

PATIENT
  Age: 62 Year
  Sex: Female

DRUGS (6)
  1. FASLODEX [Concomitant]
     Active Substance: FULVESTRANT
     Dosage: UNK, DAILY
  2. MELATONIN [Concomitant]
     Active Substance: MELATONIN
     Dosage: UNK
  3. MAGNESIUM [Concomitant]
     Active Substance: MAGNESIUM
     Dosage: UNK
  4. IBRANCE [Suspect]
     Active Substance: PALBOCICLIB
     Indication: BREAST CANCER FEMALE
     Dosage: 125 MG DAILY, CYCLIC (FOR 21 DAYS AND OFF 7 DAYS)
     Route: 048
     Dates: start: 20190801
  5. IBRANCE [Suspect]
     Active Substance: PALBOCICLIB
     Dosage: 125 MG DAILY, CYCLIC (FOR 21 DAYS AND OFF 7 DAYS)
     Route: 048
     Dates: start: 20190907
  6. IBRANCE [Suspect]
     Active Substance: PALBOCICLIB
     Dosage: 100 MG, CYCLIC (DAILY FOR 21 DAYS AND OFF 7 DAYS)
     Route: 048
     Dates: start: 20191120

REACTIONS (9)
  - White blood cell count decreased [Recovered/Resolved]
  - Fatigue [Not Recovered/Not Resolved]
  - Product dose omission [Unknown]
  - Nasopharyngitis [Unknown]
  - Insomnia [Not Recovered/Not Resolved]
  - Off label use [Unknown]
  - Bone marrow failure [Unknown]
  - Product use issue [Unknown]
  - Nausea [Recovered/Resolved]

NARRATIVE: CASE EVENT DATE: 2019
